FAERS Safety Report 5035398-7 (Version None)
Quarter: 2006Q2

REPORT INFORMATION
  Report Type: 
  Country: None (occurrence: None)
  Receive Date: 20060525
  Receipt Date: 20060314
  Transmission Date: 20061013
  Serious: No
  Sender: FDA-Public Use
  Company Number: 2006US002886

PATIENT
  Age: 46 Year
  Sex: Female
  Weight: 94.3 kg

DRUGS (7)
  1. ALOXI [Suspect]
     Indication: PROPHYLAXIS OF NAUSEA AND VOMITING
     Dosage: 0.25 MG,SINGLE,IV BOLUS
     Route: 040
     Dates: start: 20060309, end: 20060309
  2. NAVELBINE [Suspect]
     Indication: BREAST CANCER
     Dosage: 60 MG, QWK, IV DRIP
     Route: 041
     Dates: start: 20060309, end: 20060309
  3. BENADRYL [Concomitant]
  4. ZANTAC [Concomitant]
  5. ACETAMINOPHEN [Concomitant]
  6. HERCEPTIN [Concomitant]
  7. MULTIVITAMINS (RETINOL, NICOTINAMIDE, RIBOFLAVIN, PANTHENOL, FOLIC ACI [Concomitant]

REACTIONS (5)
  - EAR PAIN [None]
  - GLOSSODYNIA [None]
  - HEADACHE [None]
  - THROAT IRRITATION [None]
  - TOOTHACHE [None]
